FAERS Safety Report 6382099-9 (Version None)
Quarter: 2009Q3

REPORT INFORMATION
  Report Type: 
  Country: None (occurrence: None)
  Receive Date: 20090930
  Receipt Date: 20090921
  Transmission Date: 20100115
  Serious: Yes (Other)
  Sender: FDA-Public Use
  Company Number: PHHY2009BR40165

PATIENT
  Sex: Female
  Weight: 62 kg

DRUGS (1)
  1. FORASEQ [Suspect]
     Indication: COUGH
     Dosage: 1 CAPSULE OF EACH TREATMENT, EVERY 12 HOURS
     Dates: start: 20090908

REACTIONS (5)
  - ANXIETY [None]
  - HAEMORRHOIDS [None]
  - HUNGER [None]
  - PAIN [None]
  - WEIGHT INCREASED [None]
